FAERS Safety Report 15721678 (Version 1)
Quarter: 2018Q4

REPORT INFORMATION
  Report Type: Spontaneous
  Country: GB (occurrence: GB)
  Receive Date: 20181214
  Receipt Date: 20181214
  Transmission Date: 20190205
  Serious: Yes (Hospitalization)
  Sender: FDA-Public Use
  Company Number: GB-ACCORD-095964

PATIENT
  Age: 35 Year
  Sex: Male

DRUGS (1)
  1. SERTRALINE [Suspect]
     Active Substance: SERTRALINE HYDROCHLORIDE
     Indication: DEPRESSION
     Route: 048
     Dates: start: 20180109, end: 20180117

REACTIONS (2)
  - Oesophageal ulcer [Unknown]
  - Odynophagia [Unknown]

NARRATIVE: CASE EVENT DATE: 20180126
